FAERS Safety Report 4333268-0 (Version None)
Quarter: 2004Q2

REPORT INFORMATION
  Report Type: 
  Country: None (occurrence: None)
  Receive Date: 20040405
  Receipt Date: 20040405
  Transmission Date: 20050107
  Serious: No
  Sender: FDA-Public Use
  Company Number: None

PATIENT
  Age: 64 Year
  Sex: Male
  Weight: 63.2 kg

DRUGS (1)
  1. VALPROIC ACID [Suspect]
     Dosage: 500 MG Q 8H ORAL
     Route: 048
     Dates: start: 20040329, end: 20040402

REACTIONS (1)
  - PLATELET COUNT DECREASED [None]
